FAERS Safety Report 10451260 (Version 2)
Quarter: 2014Q3

REPORT INFORMATION
  Report Type: Report from Study
  Country: US (occurrence: US)
  Receive Date: 20140912
  Receipt Date: 20140922
  Transmission Date: 20150326
  Serious: Yes (Death, Hospitalization)
  Sender: FDA-Public Use
  Company Number: US-MERCK-1409USA004832

PATIENT
  Age: 72 Year
  Sex: Male

DRUGS (1)
  1. PEMBROLIZUMAB. [Suspect]
     Active Substance: PEMBROLIZUMAB
     Indication: HEAD AND NECK CANCER
     Dosage: 10 MG/KG, Q2W
     Route: 042

REACTIONS (2)
  - Dyspnoea [Recovered/Resolved with Sequelae]
  - Death [Fatal]

NARRATIVE: CASE EVENT DATE: 20140828
